FAERS Safety Report 12337101 (Version 2)
Quarter: 2016Q2

REPORT INFORMATION
  Report Type: Report from Study
  Country: BE (occurrence: BE)
  Receive Date: 20160505
  Receipt Date: 20160523
  Transmission Date: 20160815
  Serious: Yes (Death, Life-Threatening, Hospitalization, Other)
  Sender: FDA-Public Use
  Company Number: BE-CELGENEUS-BEL-2015072677

PATIENT
  Age: 66 Year
  Sex: Female
  Weight: 58.8 kg

DRUGS (4)
  1. VIDAZA [Suspect]
     Active Substance: AZACITIDINE
     Route: 065
     Dates: start: 20150816, end: 20150907
  2. VIDAZA [Suspect]
     Active Substance: AZACITIDINE
     Route: 065
     Dates: end: 20150821
  3. VIDAZA [Suspect]
     Active Substance: AZACITIDINE
     Indication: MYELODYSPLASTIC SYNDROME
     Route: 065
     Dates: start: 20150608, end: 20150630
  4. VIDAZA [Suspect]
     Active Substance: AZACITIDINE
     Route: 065
     Dates: start: 20150613, end: 20150803

REACTIONS (5)
  - Transplant rejection [Not Recovered/Not Resolved]
  - Cystitis [Recovered/Resolved]
  - Gastritis [Recovered/Resolved]
  - Febrile neutropenia [Recovered/Resolved]
  - Myelodysplastic syndrome [Fatal]

NARRATIVE: CASE EVENT DATE: 20150630
